FAERS Safety Report 20629076 (Version 5)
Quarter: 2022Q2

REPORT INFORMATION
  Report Type: Spontaneous
  Country: US (occurrence: US)
  Receive Date: 20220323
  Receipt Date: 20220614
  Transmission Date: 20220721
  Serious: Yes (Other)
  Sender: FDA-Public Use
  Company Number: US-GLAXOSMITHKLINE-US2022AMR051186

PATIENT
  Sex: Female

DRUGS (2)
  1. ZEJULA [Suspect]
     Active Substance: NIRAPARIB
     Indication: Ovarian cancer
     Dosage: 200 MG, QD
     Route: 048
     Dates: start: 20220317, end: 20220325
  2. ZEJULA [Suspect]
     Active Substance: NIRAPARIB
     Dosage: 200 MG, QD
     Route: 048
     Dates: start: 20220413, end: 20220503

REACTIONS (14)
  - Thrombocytopenia [Recovered/Resolved]
  - Headache [Not Recovered/Not Resolved]
  - Nausea [Unknown]
  - Restlessness [Unknown]
  - Insomnia [Unknown]
  - Hypertension [Recovered/Resolved]
  - Vitamin D decreased [Unknown]
  - Malaise [Recovered/Resolved]
  - Platelet count decreased [Recovered/Resolved]
  - Heart rate increased [Recovered/Resolved]
  - Oral pain [Unknown]
  - Glossodynia [Unknown]
  - Eating disorder [Recovered/Resolved]
  - Stomatitis [Recovered/Resolved]
